FAERS Safety Report 19936073 (Version 2)
Quarter: 2023Q2

REPORT INFORMATION
  Report Type: Spontaneous
  Country: US (occurrence: US)
  Receive Date: 20211008
  Receipt Date: 20230504
  Transmission Date: 20230721
  Serious: No
  Sender: FDA-Public Use
  Company Number: US-PFIZER INC-202100922265

PATIENT
  Age: 65 Year
  Sex: Female

DRUGS (1)
  1. IBRANCE [Suspect]
     Active Substance: PALBOCICLIB
     Dosage: 125 MG (DAILY FOR 21 DAYS)
     Dates: start: 20210626

REACTIONS (3)
  - Nausea [Unknown]
  - Diarrhoea [Unknown]
  - Neoplasm progression [Unknown]
